FAERS Safety Report 6329239-5 (Version None)
Quarter: 2009Q3

REPORT INFORMATION
  Report Type: 
  Country: None (occurrence: None)
  Receive Date: 20090826
  Receipt Date: 20090819
  Transmission Date: 20100115
  Serious: Yes (Life-Threatening, Hospitalization)
  Sender: FDA-Public Use
  Company Number: ES-CELGENEUS-144-21880-09081465

PATIENT
  Sex: Male
  Weight: 78 kg

DRUGS (12)
  1. REVLIMID [Suspect]
     Indication: MULTIPLE MYELOMA
     Route: 048
     Dates: start: 20090122
  2. DEXAMETHASONE [Concomitant]
     Indication: MULTIPLE MYELOMA
     Route: 048
     Dates: start: 20090101
  3. ACYCLOVIR [Concomitant]
     Indication: PROPHYLAXIS
     Route: 048
     Dates: start: 20090101
  4. SEPTIM FORTE [Concomitant]
     Indication: PROPHYLAXIS
     Dosage: 800/160 MG
     Route: 048
     Dates: start: 20090101
  5. LEVOFLOXACIN [Concomitant]
     Route: 048
     Dates: start: 20090807
  6. LEVOFLOXACIN [Concomitant]
     Indication: COUGH
  7. DARBOPOETIN [Concomitant]
     Route: 058
     Dates: start: 20090720
  8. PARACETAMOL [Concomitant]
     Route: 048
     Dates: start: 20090101
  9. PARACETAMOL [Concomitant]
     Indication: PAIN
  10. CALCIUM [Concomitant]
     Indication: MULTIPLE MYELOMA
     Route: 048
  11. OMEPRAZOLE [Concomitant]
     Indication: PROPHYLAXIS
     Route: 048
  12. HEPARIN [Concomitant]
     Indication: PROPHYLAXIS
     Route: 065

REACTIONS (2)
  - DISEASE PROGRESSION [None]
  - PYREXIA [None]
